FAERS Safety Report 8623438-5 (Version None)
Quarter: 2012Q3

REPORT INFORMATION
  Report Type: 
  Country: None (occurrence: None)
  Receive Date: 20120827
  Receipt Date: 20120816
  Transmission Date: 20120928
  Serious: Yes (Hospitalization, Other)
  Sender: FDA-Public Use
  Company Number: FR-BRISTOL-MYERS SQUIBB COMPANY-16864522

PATIENT
  Age: 75 Year
  Sex: Female

DRUGS (1)
  1. ABILIFY [Suspect]
     Dates: start: 20111201, end: 20120816

REACTIONS (3)
  - NEUTROPENIA [None]
  - ANAEMIA [None]
  - LYMPHOPENIA [None]
